FAERS Safety Report 6234103-6 (Version None)
Quarter: 2009Q2

REPORT INFORMATION
  Report Type: 
  Country: None (occurrence: None)
  Receive Date: 20090616
  Receipt Date: 20090616
  Transmission Date: 20091009
  Serious: Yes (Hospitalization)
  Sender: FDA-Public Use
  Company Number: None

PATIENT
  Age: 47 Year
  Sex: Male
  Weight: 127 kg

DRUGS (10)
  1. LISINOPRIL [Suspect]
     Indication: HYPERTENSION
     Dosage: 20 MG DAILY PO
     Route: 048
     Dates: start: 20080407, end: 20090512
  2. LISINOPRIL [Suspect]
     Indication: HYPERTENSION
     Dosage: 20 MG DAILY PO
     Route: 048
     Dates: start: 20090515, end: 20090518
  3. ASPIRIN [Concomitant]
  4. SIMVASTATIN [Concomitant]
  5. PLAVIX [Concomitant]
  6. ISOSORBIDE MONONITRATE [Concomitant]
  7. GLIPIZIDE [Concomitant]
  8. KLOR-CON [Concomitant]
  9. DILTIAZEM [Concomitant]
  10. HTCZ [Concomitant]

REACTIONS (2)
  - ANGIOEDEMA [None]
  - CHEST PAIN [None]
